FAERS Safety Report 7079643-5 (Version None)
Quarter: 2010Q4

REPORT INFORMATION
  Report Type: 
  Country: None (occurrence: None)
  Receive Date: 20101102
  Receipt Date: 20101018
  Transmission Date: 20110411
  Serious: Yes (Death, Hospitalization, Other)
  Sender: FDA-Public Use
  Company Number: US-AMGEN-QUU431816

PATIENT

DRUGS (13)
  1. NPLATE [Suspect]
     Indication: IDIOPATHIC THROMBOCYTOPENIC PURPURA
     Dosage: 2 A?G/KG, QWK
     Route: 058
     Dates: start: 20100621, end: 20100708
  2. CORTICOSTEROID NOS [Concomitant]
     Dosage: UNK UNK, UNK
     Dates: start: 20040624
  3. PREDNISONE [Concomitant]
     Dosage: 60 MG, QD
  4. LASIX [Concomitant]
     Dosage: 20 MG, BID
  5. CALCIUM [Concomitant]
  6. MULTIVITAMIN                       /00097801/ [Concomitant]
  7. TYLENOL (CAPLET) [Concomitant]
     Dosage: UNK UNK, PRN
  8. PRILOSEC [Concomitant]
  9. VITAMIN C                          /00008001/ [Concomitant]
  10. VITAMIN A [Concomitant]
  11. KEPPRA [Concomitant]
     Dosage: 500 MG, BID
  12. LACTULOSE [Concomitant]
     Dosage: 30 ML, PRN
  13. SPIRONOLACTONE [Concomitant]

REACTIONS (30)
  - ABDOMINAL PAIN UPPER [None]
  - ASTHENIA [None]
  - BLOOD POTASSIUM INCREASED [None]
  - BUNDLE BRANCH BLOCK RIGHT [None]
  - CARDIAC ARREST [None]
  - CELLULITIS [None]
  - COUGH [None]
  - DECREASED APPETITE [None]
  - DISSEMINATED INTRAVASCULAR COAGULATION [None]
  - DIZZINESS [None]
  - DYSPNOEA EXERTIONAL [None]
  - ECCHYMOSIS [None]
  - FATIGUE [None]
  - HEADACHE [None]
  - HYPOTENSION [None]
  - JAUNDICE [None]
  - LACTIC ACIDOSIS [None]
  - NAUSEA [None]
  - OCULAR ICTERUS [None]
  - OEDEMA PERIPHERAL [None]
  - PULMONARY HYPERTENSION [None]
  - PYREXIA [None]
  - RENAL IMPAIRMENT [None]
  - SEPSIS [None]
  - SEPTIC SHOCK [None]
  - SINUS TACHYCARDIA [None]
  - THROMBOTIC THROMBOCYTOPENIC PURPURA [None]
  - TRICUSPID VALVE INCOMPETENCE [None]
  - VAGINAL INFLAMMATION [None]
  - VENTRICULAR HYPERTROPHY [None]
